FAERS Safety Report 13497493 (Version 3)
Quarter: 2017Q2

REPORT INFORMATION
  Report Type: Spontaneous
  Country: FR (occurrence: FR)
  Receive Date: 20170428
  Receipt Date: 20170623
  Transmission Date: 20170830
  Serious: Yes (Hospitalization, Disabling, Congenital Anomaly, Other)
  Sender: FDA-Public Use
  Company Number: FR-ABBVIE-17P-056-1958156-00

PATIENT
  Sex: Male

DRUGS (1)
  1. DEPAKINE CHRONO [Suspect]
     Active Substance: VALPROATE SODIUM
     Indication: MATERNAL EXPOSURE TIMING UNSPECIFIED
     Route: 064

REACTIONS (24)
  - Pyelonephritis acute [Unknown]
  - Psychomotor retardation [Unknown]
  - Congenital knee deformity [Unknown]
  - Ear, nose and throat examination abnormal [Unknown]
  - Hypermetropia [Unknown]
  - Foetal anticonvulsant syndrome [Unknown]
  - Microcephaly [Unknown]
  - Dysmorphism [Unknown]
  - Developmental delay [Unknown]
  - Disturbance in attention [Unknown]
  - Foetal exposure during pregnancy [Unknown]
  - Plagiocephaly [Unknown]
  - Strabismus [Unknown]
  - Refraction disorder [Unknown]
  - Arthropathy [Unknown]
  - Speech disorder developmental [Unknown]
  - Anger [Unknown]
  - Talipes [Unknown]
  - Gastrointestinal disorder [Unknown]
  - Astigmatism [Unknown]
  - Urinary incontinence [Unknown]
  - Mobility decreased [Unknown]
  - Anxiety [Unknown]
  - Hypertonia [Unknown]

NARRATIVE: CASE EVENT DATE: 20060728
